FAERS Safety Report 8530252-8 (Version None)
Quarter: 2012Q3

REPORT INFORMATION
  Report Type: 
  Country: None (occurrence: None)
  Receive Date: 20120723
  Receipt Date: 20120717
  Transmission Date: 20120928
  Serious: Yes (Hospitalization, Other)
  Sender: FDA-Public Use
  Company Number: BR-PFIZER INC-2012173135

PATIENT
  Age: 29 Year
  Sex: Female

DRUGS (1)
  1. GEODON [Suspect]
     Indication: BORDERLINE PERSONALITY DISORDER
     Dosage: 40 MG, 1X/DAY
     Route: 048
     Dates: start: 20110101

REACTIONS (3)
  - NERVOUSNESS [None]
  - SUICIDE ATTEMPT [None]
  - AGGRESSION [None]
